FAERS Safety Report 5199476-4 (Version None)
Quarter: 2006Q4

REPORT INFORMATION
  Report Type: 
  Country: None (occurrence: None)
  Receive Date: 20061229
  Receipt Date: 20061218
  Transmission Date: 20070319
  Serious: Yes (Hospitalization)
  Sender: FDA-Public Use
  Company Number: FABR-11780

PATIENT
  Age: 2 Month
  Sex: Female

DRUGS (1)
  1. FABRAZYME [Suspect]
     Indication: DRUG EXPOSURE DURING PREGNANCY

REACTIONS (3)
  - ABSCESS NECK [None]
  - CELLULITIS [None]
  - DRUG EXPOSURE DURING PREGNANCY [None]
